FAERS Safety Report 5574782-X (Version None)
Quarter: 2007Q4

REPORT INFORMATION
  Report Type: 
  Country: None (occurrence: None)
  Receive Date: 20071227
  Receipt Date: 20071218
  Transmission Date: 20080405
  Serious: Yes (Hospitalization)
  Sender: FDA-Public Use
  Company Number: CA-MERCK-0711CAN00126

PATIENT
  Age: 52 Year
  Sex: Female
  Weight: 68 kg

DRUGS (21)
  1. EMEND [Suspect]
     Indication: PROPHYLAXIS OF NAUSEA AND VOMITING
     Route: 048
     Dates: start: 20071105, end: 20071105
  2. EMEND [Suspect]
     Route: 048
     Dates: start: 20071106, end: 20071106
  3. EMEND [Suspect]
     Route: 048
  4. EMEND [Suspect]
     Route: 048
  5. EMEND [Suspect]
     Route: 048
  6. EMEND [Suspect]
     Indication: NAUSEA
     Route: 048
     Dates: start: 20071105, end: 20071105
  7. EMEND [Suspect]
     Route: 048
     Dates: start: 20071106, end: 20071106
  8. EMEND [Suspect]
     Route: 048
  9. EMEND [Suspect]
     Route: 048
  10. EMEND [Suspect]
     Route: 048
  11. IRINOTECAN HYDROCHLORIDE [Concomitant]
     Route: 042
  12. LEUCOVORIN CALCIUM [Concomitant]
     Route: 042
  13. FLUOROURACIL [Concomitant]
     Route: 042
  14. FLUOROURACIL [Concomitant]
     Route: 042
  15. DEXAMETHASONE [Concomitant]
     Route: 048
     Dates: start: 20071105, end: 20071109
  16. DEXAMETHASONE [Concomitant]
     Route: 042
     Dates: start: 20071105, end: 20071105
  17. OMEPRAZOLE [Concomitant]
     Route: 048
     Dates: start: 20071105, end: 20071111
  18. LORAZEPAM [Concomitant]
     Route: 048
  19. LORAZEPAM [Concomitant]
     Route: 060
     Dates: start: 20071105, end: 20071105
  20. ONDANSETRON [Concomitant]
     Indication: PREMEDICATION
     Route: 042
     Dates: start: 20071105, end: 20071105
  21. ATROPINE [Concomitant]
     Indication: PREMEDICATION
     Route: 058
     Dates: start: 20071105, end: 20071105

REACTIONS (8)
  - AMNESIA [None]
  - CONFUSIONAL STATE [None]
  - DEHYDRATION [None]
  - DIARRHOEA [None]
  - DISORIENTATION [None]
  - SENSORY DISTURBANCE [None]
  - STUPOR [None]
  - VOMITING [None]
